FAERS Safety Report 7620495-X (Version None)
Quarter: 2011Q3

REPORT INFORMATION
  Report Type: 
  Country: None (occurrence: None)
  Receive Date: 20110719
  Receipt Date: 20110705
  Transmission Date: 20111222
  Serious: Yes (Hospitalization)
  Sender: FDA-Public Use
  Company Number: DE-SANOFI-AVENTIS-2011SA044108

PATIENT
  Age: 80 Year
  Sex: Male
  Weight: 82 kg

DRUGS (8)
  1. LERCANIDIPINE [Concomitant]
     Route: 065
  2. METOPROLOL TARTRATE [Concomitant]
     Route: 065
  3. EMBOLEX [Concomitant]
     Route: 065
     Dates: end: 20101205
  4. THIAZIDES [Concomitant]
     Route: 065
  5. DRONEDARONE HCL [Suspect]
     Indication: ATRIAL FIBRILLATION
     Route: 048
     Dates: start: 20101202
  6. PHENPROCOUMON [Concomitant]
  7. ALLOPURINOL [Concomitant]
     Route: 065
     Dates: end: 20101201
  8. RAMIPRIL [Concomitant]
     Route: 065

REACTIONS (1)
  - DIZZINESS [None]
